FAERS Safety Report 4633838-6 (Version None)
Quarter: 2005Q2

REPORT INFORMATION
  Report Type: 
  Country: None (occurrence: None)
  Receive Date: 20050411
  Receipt Date: 20050328
  Transmission Date: 20051028
  Serious: Yes (Hospitalization, Other)
  Sender: FDA-Public Use
  Company Number: CHPA2003US02314

PATIENT
  Age: 61 Year
  Sex: Male
  Weight: 110.2 kg

DRUGS (29)
  1. EX-LAX LAXATIVE  (NCH) [Suspect]
     Indication: WEIGHT CONTROL
     Dosage: ORAL
     Route: 048
     Dates: start: 19840101, end: 20020101
  2. DULCOLAX [Suspect]
     Indication: WEIGHT CONTROL
     Dosage: ORAL
     Route: 048
     Dates: start: 19840101
  3. CORRECTOL [Suspect]
     Indication: WEIGHT CONTROL
     Dosage: ORAL
     Route: 048
     Dates: start: 19840101
  4. NORVASC/DEN/ (AMLODIPINE BESILATE) [Concomitant]
  5. MERIDIA [Concomitant]
  6. FASTIN [Concomitant]
  7. PONDIMIN [Concomitant]
  8. PEPCID [Concomitant]
  9. VIOXX [Concomitant]
  10. MEDROL [Concomitant]
  11. SKELAXIN [Concomitant]
  12. ZANAFLEX [Concomitant]
  13. HYDROCODONE BITARTRATE [Concomitant]
  14. BENADRYL ^ACHE^ (AMMONIUM CHLORIDE, DIPHENHYDRAMINE HYDROCHLORIDE, MEN [Concomitant]
  15. AMBIEN [Concomitant]
  16. OXYCONTIN [Concomitant]
  17. TORADOL [Concomitant]
  18. NAPROSYN [Concomitant]
  19. ASPIRIN [Concomitant]
  20. ULTRACET [Concomitant]
  21. PHENTERMINE [Concomitant]
  22. FENFLURAMINE [Concomitant]
  23. VITAMINS (NO INGREDIENTS/SUBSTANCES) [Concomitant]
  24. K-DUR 10 [Concomitant]
  25. MILK OF MAGNESIA (MAGNESIUM HYDROXIDE) [Concomitant]
  26. PHENERGAN [Concomitant]
  27. MORPHINE SULFATE [Concomitant]
  28. XANAX [Concomitant]
  29. ALUMINIUM W/MAGNESIUM/SIMETICONE (ALUMINIUM, MAGNESIUM, SIMETICONE) [Concomitant]

REACTIONS (20)
  - ABDOMINAL PAIN [None]
  - ANAEMIA [None]
  - ANXIETY [None]
  - CELLULITIS [None]
  - COLONIC HAEMORRHAGE [None]
  - DIVERTICULUM INTESTINAL [None]
  - DIVERTICULUM INTESTINAL HAEMORRHAGIC [None]
  - DRUG DEPENDENCE [None]
  - ECONOMIC PROBLEM [None]
  - HAEMATURIA [None]
  - HYPOTENSION [None]
  - INCISION SITE COMPLICATION [None]
  - INJURY [None]
  - LAXATIVE ABUSE [None]
  - LOWER GASTROINTESTINAL HAEMORRHAGE [None]
  - NEPHROLITHIASIS [None]
  - PAIN [None]
  - POLYP [None]
  - RECTAL HAEMORRHAGE [None]
  - SHOCK HAEMORRHAGIC [None]
